FAERS Safety Report 9140630 (Version 3)
Quarter: 2014Q2

REPORT INFORMATION
  Report Type: Spontaneous
  Country: US (occurrence: US)
  Receive Date: 20130305
  Receipt Date: 20140416
  Transmission Date: 20141212
  Serious: Yes (Death, Hospitalization)
  Sender: FDA-Public Use
  Company Number: US-GLAXOSMITHKLINE-A0996454A

PATIENT
  Sex: Female

DRUGS (1)
  1. AVANDIA [Suspect]
     Indication: DIABETES MELLITUS
     Dosage: 4MG PER DAY
     Route: 048
     Dates: start: 20070108

REACTIONS (7)
  - Cardiac arrest [Fatal]
  - Angina pectoris [Unknown]
  - Cardiac failure congestive [Unknown]
  - Stent placement [Unknown]
  - Myocardial infarction [Unknown]
  - Heart rate irregular [Unknown]
  - Coronary artery disease [Unknown]
